FAERS Safety Report 10470925 (Version 1)
Quarter: 2014Q3

REPORT INFORMATION
  Report Type: Spontaneous
  Country: BR (occurrence: BR)
  Receive Date: 20140923
  Receipt Date: 20140923
  Transmission Date: 20150326
  Serious: Yes (Death, Other)
  Sender: FDA-Public Use
  Company Number: PHHY2014BR121347

PATIENT
  Age: 77 Year
  Sex: Male

DRUGS (1)
  1. SANDOSTATIN LAR DEPOT [Suspect]
     Active Substance: OCTREOTIDE ACETATE
     Indication: NEUROENDOCRINE TUMOUR
     Dosage: UNK
     Dates: start: 201301

REACTIONS (9)
  - Acute leukaemia [Fatal]
  - Second primary malignancy [Fatal]
  - Hepatic lesion [Unknown]
  - Spinal disorder [Unknown]
  - Pancytopenia [Unknown]
  - Cytogenetic abnormality [Unknown]
  - Asthenia [Unknown]
  - Metastases to spine [Unknown]
  - Myelodysplastic syndrome [Unknown]

NARRATIVE: CASE EVENT DATE: 201402
